FAERS Safety Report 13269468 (Version 2)
Quarter: 2017Q1

REPORT INFORMATION
  Report Type: Spontaneous
  Country: ES (occurrence: ES)
  Receive Date: 20170224
  Receipt Date: 20170228
  Transmission Date: 20170428
  Serious: Yes (Hospitalization, Other)
  Sender: FDA-Public Use
  Company Number: ES-BAYER-2017-024258

PATIENT
  Age: 57 Year
  Sex: Male

DRUGS (10)
  1. TACROLIMUS. [Concomitant]
     Active Substance: TACROLIMUS
  2. ACETYLSALICYLIC ACID (} 100 MG) [Suspect]
     Active Substance: ASPIRIN
     Indication: MYOCARDIAL ISCHAEMIA
     Dosage: 300 MG, QD
  3. MYCOPHENOLATE MOFETIL. [Concomitant]
     Active Substance: MYCOPHENOLATE MOFETIL
  4. ACETYLSALICYLIC ACID (} 100 MG) [Suspect]
     Active Substance: ASPIRIN
     Indication: ANGINA PECTORIS
  5. BISOPROLOL [Concomitant]
     Active Substance: BISOPROLOL
     Indication: MYOCARDIAL ISCHAEMIA
     Dosage: 2.5 MG, QD
  6. METFORMIN [Concomitant]
     Active Substance: METFORMIN HYDROCHLORIDE
     Indication: TYPE 2 DIABETES MELLITUS
  7. NIFEDIPINE. [Suspect]
     Active Substance: NIFEDIPINE
     Indication: HYPERTENSION
     Dosage: 20 MG, QD, AT NIGHT
  8. BISOPROLOL [Concomitant]
     Active Substance: BISOPROLOL
     Indication: ANGINA PECTORIS
  9. RAMIPRIL. [Concomitant]
     Active Substance: RAMIPRIL
     Indication: HYPERTENSION
     Dosage: 2.5 MG, QD, AT MORNING
  10. ATORVASTATIN [Concomitant]
     Active Substance: ATORVASTATIN
     Indication: DYSLIPIDAEMIA
     Dosage: 40 MG, QD

REACTIONS (33)
  - Vestibular nystagmus [Recovered/Resolved]
  - Heart valve incompetence [Unknown]
  - Transient ischaemic attack [Recovered/Resolved]
  - Balance disorder [Recovered/Resolved]
  - Dysmetria [Recovered/Resolved]
  - Cardiomegaly [Unknown]
  - Vertebral artery stenosis [Recovered/Resolved]
  - Hemianaesthesia [Recovered/Resolved]
  - Coordination abnormal [Recovered/Resolved]
  - Angiopathy [None]
  - Arteriosclerosis [None]
  - Hemiparesis [Recovered/Resolved]
  - Eye movement disorder [Recovered/Resolved]
  - Nystagmus [Recovered/Resolved]
  - Left atrial enlargement [Unknown]
  - Hypotension [Unknown]
  - Ischaemic stroke [Recovered/Resolved]
  - Vision blurred [Recovered/Resolved]
  - Speech disorder [Recovered/Resolved]
  - Ventricular hypertrophy [Unknown]
  - Left ventricular failure [Unknown]
  - Dizziness [Recovered/Resolved]
  - Facial paralysis [Recovered/Resolved]
  - Dysstasia [Recovered/Resolved]
  - Ataxia [Recovered/Resolved]
  - Central nervous system lesion [Unknown]
  - Vascular encephalopathy [Unknown]
  - Carotid artery stenosis [Recovered/Resolved]
  - Paraesthesia [Recovered/Resolved]
  - Dysarthria [Recovered/Resolved]
  - Hepatic enzyme increased [Recovered/Resolved]
  - Central nervous system lesion [Recovered/Resolved]
  - IIIrd nerve paresis [Recovered/Resolved]
